FAERS Safety Report 15621581 (Version 1)
Quarter: 2018Q4

REPORT INFORMATION
  Report Type: Spontaneous
  Country: None (occurrence: US)
  Receive Date: 20181115
  Receipt Date: 20181115
  Transmission Date: 20190205
  Serious: Yes (Hospitalization)
  Sender: FDA-Public Use
  Company Number: US-NEWMARKET HEALTH PRODUCTS LLC-2058885

PATIENT
  Age: 69 Year
  Sex: Male
  Weight: 145.45 kg

DRUGS (1)
  1. SOOTHANOL X2 [Suspect]
     Active Substance: CAPSAICIN\MENTHOL
     Indication: ANALGESIC THERAPY
     Route: 061
     Dates: start: 20180601, end: 20180615

REACTIONS (3)
  - Skin exfoliation [None]
  - Skin lesion [None]
  - Blister [None]
